FAERS Safety Report 18442711 (Version 1)
Quarter: 2020Q4

REPORT INFORMATION
  Report Type: Spontaneous
  Country: CA (occurrence: CA)
  Receive Date: 20201029
  Receipt Date: 20201029
  Transmission Date: 20210114
  Serious: Yes (Hospitalization, Other)
  Sender: FDA-Public Use
  Company Number: CA-PFIZER INC-2020415161

PATIENT
  Age: 68 Year
  Sex: Female
  Weight: 86 kg

DRUGS (1)
  1. LYRICA [Suspect]
     Active Substance: PREGABALIN
     Dosage: 300 MG
     Route: 048

REACTIONS (16)
  - Nausea [Unknown]
  - Skin discolouration [Unknown]
  - Chest pain [Not Recovered/Not Resolved]
  - Gait inability [Unknown]
  - Cardiac disorder [Recovered/Resolved with Sequelae]
  - Logorrhoea [Not Recovered/Not Resolved]
  - Dyspnoea [Unknown]
  - Dizziness [Unknown]
  - Dry skin [Unknown]
  - Renal disorder [Unknown]
  - Affective disorder [Unknown]
  - Body height decreased [Unknown]
  - Peripheral swelling [Unknown]
  - Abdominal distension [Unknown]
  - Fall [Recovered/Resolved with Sequelae]
  - Weight increased [Not Recovered/Not Resolved]

NARRATIVE: CASE EVENT DATE: 20171223
